FAERS Safety Report 7323419-8 (Version None)
Quarter: 2011Q1

REPORT INFORMATION
  Report Type: 
  Country: None (occurrence: None)
  Receive Date: 20110201
  Receipt Date: 20100920
  Transmission Date: 20110831
  Serious: Yes (Other)
  Sender: FDA-Public Use
  Company Number: CC-10-009

PATIENT
  Age: 17 Month
  Sex: Male

DRUGS (1)
  1. IBUPROFEN [Suspect]
     Indication: PYREXIA
     Dosage: ONCE, ORAL
     Route: 048
     Dates: start: 20100917, end: 20100918

REACTIONS (2)
  - ABDOMINAL DISCOMFORT [None]
  - VOMITING [None]
